FAERS Safety Report 14320466 (Version 1)
Quarter: 2017Q4

REPORT INFORMATION
  Report Type: Report from Study
  Country: US (occurrence: US)
  Receive Date: 20171222
  Receipt Date: 20171222
  Transmission Date: 20180321
  Serious: Yes (Other)
  Sender: FDA-Public Use
  Company Number: US-ACTELION-A-US2017-164356

PATIENT
  Age: 68 Year
  Sex: Female

DRUGS (3)
  1. OPSUMIT [Suspect]
     Active Substance: MACITENTAN
     Indication: PULMONARY ARTERIAL HYPERTENSION
     Dosage: 10 MG, QD
     Route: 048
     Dates: start: 20171030
  2. ELIQUIS [Concomitant]
     Active Substance: APIXABAN
  3. ASPIRIN. [Concomitant]
     Active Substance: ASPIRIN

REACTIONS (2)
  - Infection [Unknown]
  - Internal haemorrhage [Unknown]
